FAERS Safety Report 19516683 (Version 3)
Quarter: 2022Q2

REPORT INFORMATION
  Report Type: Report from Study
  Country: US (occurrence: US)
  Receive Date: 20210710
  Receipt Date: 20220407
  Transmission Date: 20220721
  Serious: No
  Sender: FDA-Public Use
  Company Number: US-UCBSA-2020044276

PATIENT
  Age: 73 Year
  Sex: Female

DRUGS (3)
  1. ROTIGOTINE [Suspect]
     Active Substance: ROTIGOTINE
     Indication: Parkinson^s disease
     Dosage: 6 MILLIGRAM, ONCE DAILY (QD)
     Route: 062
     Dates: end: 20201014
  2. ROTIGOTINE [Suspect]
     Active Substance: ROTIGOTINE
     Dosage: 8 MILLIGRAM, ONCE DAILY (QD)
     Route: 062
  3. ROTIGOTINE [Suspect]
     Active Substance: ROTIGOTINE
     Dosage: USED TWO PATCHES AT ONCE
     Route: 062

REACTIONS (5)
  - Product availability issue [Unknown]
  - Therapy interrupted [Unknown]
  - Device adhesion issue [Unknown]
  - Intentional product use issue [Unknown]
  - Adverse reaction [Unknown]

NARRATIVE: CASE EVENT DATE: 20201015
